FAERS Safety Report 20617553 (Version 1)
Quarter: 2022Q1

REPORT INFORMATION
  Report Type: Spontaneous
  Country: US (occurrence: US)
  Receive Date: 20220321
  Receipt Date: 20220321
  Transmission Date: 20220423
  Serious: Yes (Death, Other)
  Sender: FDA-Public Use
  Company Number: US-JNJFOC-20220321547

PATIENT

DRUGS (1)
  1. ACETAMINOPHEN [Suspect]
     Active Substance: ACETAMINOPHEN
     Indication: Product used for unknown indication
     Route: 063

REACTIONS (4)
  - Death [Fatal]
  - Bronchopulmonary dysplasia [Unknown]
  - Retinopathy of prematurity [Unknown]
  - Exposure via breast milk [Unknown]
